FAERS Safety Report 9248335 (Version 5)
Quarter: 2016Q1

REPORT INFORMATION
  Report Type: Spontaneous
  Country: US (occurrence: US)
  Receive Date: 20130423
  Receipt Date: 20160202
  Transmission Date: 20160526
  Serious: Yes (Other)
  Sender: FDA-Public Use
  Company Number: US-BAYER-2013-050015

PATIENT
  Age: 27 Year
  Sex: Female
  Weight: 68.27 kg

DRUGS (7)
  1. RISPERDAL [Concomitant]
     Active Substance: RISPERIDONE
     Indication: ANXIETY
  2. PROZAC [Concomitant]
     Active Substance: FLUOXETINE HYDROCHLORIDE
     Indication: POST-TRAUMATIC STRESS DISORDER
  3. PROZAC [Concomitant]
     Active Substance: FLUOXETINE HYDROCHLORIDE
     Indication: DEPRESSION
     Dosage: UNK
     Route: 048
     Dates: start: 2009, end: 2011
  4. PROZAC [Concomitant]
     Active Substance: FLUOXETINE HYDROCHLORIDE
     Indication: ANXIETY
  5. RISPERDAL [Concomitant]
     Active Substance: RISPERIDONE
     Indication: DEPRESSION
     Dosage: UNK
     Route: 048
     Dates: start: 2009, end: 2011
  6. MIRENA [Suspect]
     Active Substance: LEVONORGESTREL
     Indication: CONTRACEPTION
     Dosage: 20 MCG/24HR, CONT
     Route: 015
     Dates: start: 200806, end: 20120112
  7. RISPERDAL [Concomitant]
     Active Substance: RISPERIDONE
     Indication: POST-TRAUMATIC STRESS DISORDER

REACTIONS (12)
  - Injury [Recovered/Resolved]
  - Pain [Recovered/Resolved]
  - Somatic symptom disorder [None]
  - Device issue [Recovered/Resolved]
  - Device dislocation [Recovered/Resolved]
  - Anxiety [None]
  - Emotional distress [None]
  - Anhedonia [None]
  - Drug ineffective [None]
  - Depression [Not Recovered/Not Resolved]
  - Pregnancy with contraceptive device [None]
  - Device use error [None]

NARRATIVE: CASE EVENT DATE: 200909
